FAERS Safety Report 25545994 (Version 3)
Quarter: 2025Q3

REPORT INFORMATION
  Report Type: Report from Study
  Country: CO (occurrence: CO)
  Receive Date: 20250712
  Receipt Date: 20250919
  Transmission Date: 20251021
  Serious: Yes (Hospitalization, Other)
  Sender: RECORDATI
  Company Number: CO-RECORDATI RARE DISEASES-2025004797

PATIENT
  Age: 28 Year
  Sex: Female
  Weight: 52 kg

DRUGS (3)
  1. PANHEMATIN [Suspect]
     Active Substance: HEMIN
     Indication: Porphyria acute
     Route: 042
     Dates: start: 20190306
  2. PANHEMATIN [Suspect]
     Active Substance: HEMIN
     Route: 042
     Dates: start: 202501, end: 2025
  3. PANHEMATIN [Suspect]
     Active Substance: HEMIN
     Dosage: 1 VIAL EVERY 24 HOURS FOR 3 DAYS
     Route: 042
     Dates: start: 20250628, end: 20250630

REACTIONS (3)
  - Urinary tract infection [Recovered/Resolved]
  - Bacteraemia [Recovered/Resolved]
  - Pantoea agglomerans infection [Recovered/Resolved]

NARRATIVE: CASE EVENT DATE: 20250627
